FAERS Safety Report 16198592 (Version 1)
Quarter: 2019Q2

REPORT INFORMATION
  Report Type: Spontaneous
  Country: DE (occurrence: DE)
  Receive Date: 20190415
  Receipt Date: 20190415
  Transmission Date: 20190711
  Serious: Yes (Hospitalization)
  Sender: FDA-Public Use
  Company Number: DE-TEVA-2019-DE-1037769

PATIENT
  Age: 5 Year
  Sex: Male
  Weight: 22 kg

DRUGS (5)
  1. SALBUTAMOL [Concomitant]
     Active Substance: ALBUTEROL
     Indication: PYREXIA
     Dosage: DAILY DOSE: 2 DF DOSAGE FORM EVERY 3 DAYS
     Route: 055
  2. IBUPROFEN SAFT [Concomitant]
     Active Substance: IBUPROFEN
     Indication: PYREXIA
     Route: 048
  3. AMOXICILLIN SAFT [Suspect]
     Active Substance: AMOXICILLIN
     Indication: PNEUMONIA
     Dosage: 10 ML DAILY; DAILY DOSE: 10 ML MILLILITRE(S) EVERY DAYS
     Route: 048
     Dates: start: 20190211, end: 20190215
  4. CETIRIZIN [Concomitant]
     Active Substance: CETIRIZINE HYDROCHLORIDE
     Indication: URTICARIA
     Dosage: 5 ML DAILY; DAILY DOSE: 5 ML MILLILITRE(S) EVERY DAYS
     Route: 048
  5. PCM [Concomitant]
     Indication: PYREXIA

REACTIONS (3)
  - Urticaria [Recovered/Resolved]
  - Rash generalised [Recovered/Resolved]
  - Nausea [Recovered/Resolved]

NARRATIVE: CASE EVENT DATE: 20190215
